FAERS Safety Report 24078262 (Version 1)
Quarter: 2024Q3

REPORT INFORMATION
  Report Type: Spontaneous
  Country: CN (occurrence: CN)
  Receive Date: 20240711
  Receipt Date: 20240711
  Transmission Date: 20241017
  Serious: Yes (Hospitalization)
  Sender: PFIZER
  Company Number: CN-PFIZER INC-PV202400089495

PATIENT
  Age: 14 Year
  Sex: Male
  Weight: 45 kg

DRUGS (2)
  1. METHOTREXATE SODIUM [Suspect]
     Active Substance: METHOTREXATE SODIUM
     Indication: Chemotherapy
     Dosage: 7.36 G, 1X/DAY  (33.2 ML)
     Route: 041
     Dates: start: 20240702, end: 20240702
  2. SODIUM CHLORIDE [Concomitant]
     Active Substance: SODIUM CHLORIDE
     Indication: Vehicle solution use
     Dosage: 220 ML, 1X/DAY
     Route: 041
     Dates: start: 20240702, end: 20240702

REACTIONS (2)
  - Drug level abnormal [Recovering/Resolving]
  - Pyrexia [Recovering/Resolving]

NARRATIVE: CASE EVENT DATE: 20240703
